FAERS Safety Report 15712324 (Version 1)
Quarter: 2018Q4

REPORT INFORMATION
  Report Type: Spontaneous
  Country: US (occurrence: US)
  Receive Date: 20181212
  Receipt Date: 20181212
  Transmission Date: 20190205
  Serious: Yes (Other)
  Sender: FDA-Public Use
  Company Number: US-ROCHE-2227265

PATIENT
  Sex: Female
  Weight: 51.76 kg

DRUGS (42)
  1. ALPRAZOLAM. [Concomitant]
     Active Substance: ALPRAZOLAM
     Route: 048
     Dates: start: 20170331
  2. ZARXIO [Concomitant]
     Active Substance: FILGRASTIM-SNDZ
     Dosage: ONGOING:UNKNOWN
     Route: 058
     Dates: start: 20181016
  3. LORAZEPAM. [Concomitant]
     Active Substance: LORAZEPAM
     Route: 048
     Dates: start: 20180821
  4. AVELOX [Concomitant]
     Active Substance: MOXIFLOXACIN HYDROCHLORIDE
     Route: 048
     Dates: start: 20181005
  5. ONDANSETRON [Concomitant]
     Active Substance: ONDANSETRON
     Dosage: ORAL DISINTEGRATING TABLET;ONGOING:UNKNOWN
     Route: 048
     Dates: start: 20181005
  6. LOMOTIL [Concomitant]
     Active Substance: ATROPINE SULFATE\DIPHENOXYLATE HYDROCHLORIDE
     Dosage: DIPHENOXYLATE-ATROPINE ORAL 2.5 MG-0.025 MG
     Route: 048
     Dates: start: 20180520
  7. TRAZODONE [Concomitant]
     Active Substance: TRAZODONE HYDROCHLORIDE
     Route: 048
     Dates: start: 20181009
  8. PAXIL [Concomitant]
     Active Substance: PAROXETINE HYDROCHLORIDE
     Route: 048
     Dates: start: 20170331
  9. DEXAMETHASONE. [Concomitant]
     Active Substance: DEXAMETHASONE
     Route: 048
     Dates: start: 20180923
  10. GABAPENTIN. [Concomitant]
     Active Substance: GABAPENTIN
     Route: 048
     Dates: start: 20180907
  11. TRIAMCINOLONE [Concomitant]
     Active Substance: TRIAMCINOLONE
     Dosage: TOPICAL CREAM 0.1 %
     Route: 061
     Dates: start: 20160520
  12. FAMCICLOVIR. [Concomitant]
     Active Substance: FAMCICLOVIR
     Route: 048
     Dates: start: 20181005
  13. LINZESS [Concomitant]
     Active Substance: LINACLOTIDE
     Route: 048
     Dates: start: 20180628
  14. LYRICA [Concomitant]
     Active Substance: PREGABALIN
     Route: 048
     Dates: start: 20160831
  15. ACETAMINOPHEN/HYDROCODONE [Concomitant]
     Active Substance: ACETAMINOPHEN\HYDROCODONE
     Dosage: 10 MG-325 MG:ONGOING:UNKNOWN
     Route: 048
     Dates: start: 20180504
  16. IBRANCE [Concomitant]
     Active Substance: PALBOCICLIB
     Route: 048
     Dates: start: 20171013
  17. MS CONTIN [Concomitant]
     Active Substance: MORPHINE SULFATE
     Dosage: MORPHINE ORAL ER TAB;ONGOING:UNKNOWN
     Route: 048
  18. NORTRIPTYLINE [Concomitant]
     Active Substance: NORTRIPTYLINE
     Route: 048
     Dates: start: 20160808
  19. IMITREX [Concomitant]
     Active Substance: SUMATRIPTAN SUCCINATE
     Route: 048
     Dates: start: 20180911
  20. MEDROL [Concomitant]
     Active Substance: METHYLPREDNISOLONE
     Route: 065
     Dates: start: 20160807
  21. ADVAIR HFA [Concomitant]
     Active Substance: FLUTICASONE PROPIONATE\SALMETEROL XINAFOATE
     Dosage: FLUTICASONE-SALMETEROL INHALER 100 MCG-50 MCG/DOSE
     Route: 065
     Dates: start: 20161209
  22. ONDANSETRON [Concomitant]
     Active Substance: ONDANSETRON
     Route: 048
     Dates: start: 20180410
  23. BACTRIM [Concomitant]
     Active Substance: SULFAMETHOXAZOLE\TRIMETHOPRIM
     Dosage: 800 MG-160 MG
     Route: 048
     Dates: start: 20170630
  24. EMLA [Concomitant]
     Active Substance: LIDOCAINE\PRILOCAINE
     Dosage: LIDOCAINE-PRILOCAINE TOPICAL CREAM 2.5 %-2.5 %
     Route: 061
     Dates: start: 20160414
  25. COMPAZINE [Concomitant]
     Active Substance: PROCHLORPERAZINE MALEATE
     Route: 054
     Dates: start: 20180410
  26. EFFEXOR [Concomitant]
     Active Substance: VENLAFAXINE HYDROCHLORIDE
     Dosage: EFFEXOR XR (VENLAFAXINE ORAL 24 HR CAP)
     Route: 048
     Dates: start: 20180717
  27. OXYCODONE [Concomitant]
     Active Substance: OXYCODONE
     Route: 048
     Dates: start: 20160802
  28. PROCHLORPERAZINE. [Concomitant]
     Active Substance: PROCHLORPERAZINE
     Route: 048
     Dates: start: 20180520
  29. XANAX [Concomitant]
     Active Substance: ALPRAZOLAM
     Route: 048
     Dates: start: 20180410
  30. VALIUM [Suspect]
     Active Substance: DIAZEPAM
     Indication: PRODUCT USED FOR UNKNOWN INDICATION
     Route: 048
     Dates: start: 20180821
  31. DILAUDID [Concomitant]
     Active Substance: HYDROMORPHONE HYDROCHLORIDE
     Route: 048
     Dates: start: 20171219
  32. LETROZOLE. [Concomitant]
     Active Substance: LETROZOLE
     Route: 048
     Dates: start: 20160418
  33. TESSALON [Concomitant]
     Active Substance: BENZONATATE
     Route: 048
     Dates: start: 20180630
  34. ACYCLOVIR. [Concomitant]
     Active Substance: ACYCLOVIR
     Route: 048
     Dates: start: 20180911
  35. ZOLPIDEM [Concomitant]
     Active Substance: ZOLPIDEM\ZOLPIDEM TARTRATE
     Route: 048
     Dates: start: 20180504
  36. ACETAMINOPHEN/HYDROCODONE [Concomitant]
     Active Substance: ACETAMINOPHEN\HYDROCODONE
     Dosage: 5 MG-325 MG
     Route: 048
     Dates: start: 20180423
  37. CIPRO [Concomitant]
     Active Substance: CIPROFLOXACIN HYDROCHLORIDE
     Route: 048
     Dates: start: 20171219
  38. NEUPOGEN [Concomitant]
     Active Substance: FILGRASTIM
     Route: 058
     Dates: start: 20180214
  39. TRAMADOL. [Concomitant]
     Active Substance: TRAMADOL
     Route: 048
     Dates: start: 20180821
  40. XELODA [Suspect]
     Active Substance: CAPECITABINE
     Indication: PRODUCT USED FOR UNKNOWN INDICATION
     Route: 048
     Dates: start: 20160629
  41. PROTONIX (PANTOPRAZOLE SODIUM) [Concomitant]
     Dosage: DELAYED RELEASE
     Route: 048
     Dates: start: 20171206
  42. ZARXIO [Concomitant]
     Active Substance: FILGRASTIM-SNDZ
     Dosage: (FILGRASTIM-SNDZ SUBCUTANEOUS)
     Route: 058
     Dates: start: 20180806

REACTIONS (17)
  - Abdominal pain [Unknown]
  - Agranulocytosis [Unknown]
  - Lymphoedema [Unknown]
  - Metastases to lymph nodes [Unknown]
  - Neuropathy peripheral [Unknown]
  - Insomnia [Unknown]
  - Cancer pain [Unknown]
  - Diarrhoea [Unknown]
  - Breast cancer [Not Recovered/Not Resolved]
  - Metastases to liver [Unknown]
  - Constipation [Unknown]
  - Cough [Unknown]
  - Dehydration [Unknown]
  - Dizziness [Unknown]
  - Amnesia [Unknown]
  - Headache [Unknown]
  - Metastases to lung [Unknown]
